FAERS Safety Report 24917557 (Version 1)
Quarter: 2025Q1

REPORT INFORMATION
  Report Type: Spontaneous
  Country: RU (occurrence: RU)
  Receive Date: 20250203
  Receipt Date: 20250203
  Transmission Date: 20250408
  Serious: Yes (Other)
  Sender: TEVA
  Company Number: RU-TEVA-VS-3292415

PATIENT
  Age: 9 Year
  Sex: Male
  Weight: 40 kg

DRUGS (3)
  1. AZITHROMYCIN [Suspect]
     Active Substance: AZITHROMYCIN
     Indication: Pyrexia
     Route: 065
     Dates: start: 20250123, end: 20250123
  2. TONSILGON [Concomitant]
     Indication: Product used for unknown indication
     Route: 065
  3. IBUCLIN JUNIOR [Concomitant]
     Indication: Pyrexia
     Route: 065
     Dates: start: 20250123

REACTIONS (7)
  - Choking [Recovered/Resolved]
  - Headache [Recovered/Resolved]
  - Product prescribing error [Unknown]
  - Hyperhidrosis [Recovered/Resolved]
  - Pallor [Recovered/Resolved]
  - Feeling cold [Recovered/Resolved]
  - Drug hypersensitivity [Recovered/Resolved]

NARRATIVE: CASE EVENT DATE: 20250123
